FAERS Safety Report 14149480 (Version 1)
Quarter: 2017Q4

REPORT INFORMATION
  Report Type: Spontaneous
  Country: JP (occurrence: JP)
  Receive Date: 20171101
  Receipt Date: 20171101
  Transmission Date: 20180321
  Serious: Yes (Other)
  Sender: FDA-Public Use
  Company Number: JP-EDENBRIDGE PHARMACEUTICALS, LLC-JP-2017EDE000187

PATIENT
  Age: 56 Year
  Sex: Female

DRUGS (7)
  1. PREDNISOLONE SODIUM PHOSPHATE. [Suspect]
     Active Substance: PREDNISOLONE SODIUM PHOSPHATE
     Dosage: 2.5 MG, QD
     Route: 048
  2. METHOTREXATE. [Suspect]
     Active Substance: METHOTREXATE
     Indication: POLYMYOSITIS
     Dosage: UNK
  3. PREDNISOLONE SODIUM PHOSPHATE. [Suspect]
     Active Substance: PREDNISOLONE SODIUM PHOSPHATE
     Indication: POLYMYOSITIS
     Dosage: 40 MG, QD
     Route: 048
  4. PREDNISOLONE SODIUM PHOSPHATE. [Suspect]
     Active Substance: PREDNISOLONE SODIUM PHOSPHATE
     Indication: SCLERODERMA
     Dosage: 10 MG, QD
     Route: 048
  5. IMMUNOGLOBULIN                     /00025201/ [Suspect]
     Active Substance: HUMAN IMMUNOGLOBULIN G
     Indication: SCLERODERMA
  6. METHOTREXATE. [Suspect]
     Active Substance: METHOTREXATE
     Indication: SCLERODERMA
  7. IMMUNOGLOBULIN                     /00025201/ [Suspect]
     Active Substance: HUMAN IMMUNOGLOBULIN G
     Indication: POLYMYOSITIS
     Route: 042

REACTIONS (1)
  - Scleroderma renal crisis [Recovering/Resolving]
